FAERS Safety Report 9596139 (Version 2)
Quarter: 2013Q4

REPORT INFORMATION
  Report Type: Spontaneous
  Country: CA (occurrence: CA)
  Receive Date: 20131004
  Receipt Date: 20131014
  Transmission Date: 20140711
  Serious: Yes (Other)
  Sender: FDA-Public Use
  Company Number: CA-GALDERMA-CA13003026

PATIENT
  Age: 13 Year
  Sex: Female

DRUGS (1)
  1. ADAPALENE\BENZOYL PEROXIDE [Suspect]
     Dosage: 0.1%-2.5%
     Route: 061

REACTIONS (4)
  - Intracranial pressure increased [Unknown]
  - Diplopia [Recovered/Resolved]
  - Headache [Recovered/Resolved]
  - Papilloedema [Recovered/Resolved]
